FAERS Safety Report 17968270 (Version 1)
Quarter: 2020Q3

REPORT INFORMATION
  Report Type: Spontaneous
  Country: FR (occurrence: FR)
  Receive Date: 20200701
  Receipt Date: 20200701
  Transmission Date: 20201103
  Serious: Yes (Other)
  Sender: FDA-Public Use
  Company Number: FR-MYLANLABS-2020M1059005

PATIENT
  Age: 50 Year
  Sex: Male

DRUGS (3)
  1. METHOTREXATE. [Suspect]
     Active Substance: METHOTREXATE
     Indication: PUSTULAR PSORIASIS
     Dosage: UNK
     Dates: start: 20191028
  2. CYTEAL [Concomitant]
     Active Substance: CHLORHEXIDINE GLUCONATE\CHLOROCRESOL\HEXAMIDINE DIISETHIONATE
     Indication: PUSTULAR PSORIASIS
     Dosage: UNK
     Dates: start: 20191022
  3. ENSTILAR [Concomitant]
     Active Substance: BETAMETHASONE DIPROPIONATE\CALCIPOTRIENE HYDRATE
     Indication: PUSTULAR PSORIASIS
     Dosage: UNK
     Dates: start: 20191022

REACTIONS (1)
  - Toxic skin eruption [Unknown]

NARRATIVE: CASE EVENT DATE: 20191104
